FAERS Safety Report 4547986-2 (Version None)
Quarter: 2004Q4

REPORT INFORMATION
  Report Type: 
  Country: None (occurrence: None)
  Receive Date: 20041220
  Receipt Date: 20041015
  Transmission Date: 20050328
  Serious: Yes (Hospitalization, Other)
  Sender: FDA-Public Use
  Company Number: USA041081293

PATIENT
  Age: 56 Year
  Sex: Male
  Weight: 106 kg

DRUGS (1)
  1. HUMULIN N [Suspect]

REACTIONS (1)
  - DIABETIC KETOACIDOSIS [None]
